FAERS Safety Report 15706094 (Version 1)
Quarter: 2018Q4

REPORT INFORMATION
  Report Type: Spontaneous
  Country: US (occurrence: US)
  Receive Date: 20181210
  Receipt Date: 20181210
  Transmission Date: 20190205
  Serious: Yes (Death, Other)
  Sender: FDA-Public Use
  Company Number: US-ASTRAZENECA-2018SF58821

PATIENT
  Sex: Male

DRUGS (1)
  1. CALQUENCE [Suspect]
     Active Substance: ACALABRUTINIB
     Route: 048

REACTIONS (6)
  - Blood glucose decreased [Unknown]
  - Liver disorder [Unknown]
  - Renal impairment [Fatal]
  - Ammonia increased [Unknown]
  - Nervous system disorder [Unknown]
  - Incoherent [Unknown]
